FAERS Safety Report 15191488 (Version 2)
Quarter: 2018Q4

REPORT INFORMATION
  Report Type: Report from Study
  Country: US (occurrence: US)
  Receive Date: 20180724
  Receipt Date: 20181015
  Transmission Date: 20190204
  Serious: No
  Sender: FDA-Public Use
  Company Number: US-AMGEN-USASL2018083668

PATIENT
  Age: 46 Year
  Sex: Female

DRUGS (2)
  1. CYTOXAN [Suspect]
     Active Substance: CYCLOPHOSPHAMIDE
     Indication: PLASMA CELL MYELOMA
     Dosage: UNK
     Route: 065
  2. KYPROLIS [Suspect]
     Active Substance: CARFILZOMIB
     Indication: PLASMA CELL MYELOMA
     Dosage: UNK UNK, QWK (ONE INFUSION PER WEEK FOR 3 WEEKS EACH CYCLE) (3 INFUSIONS PER MONTH)
     Route: 042

REACTIONS (1)
  - Off label use [Unknown]
